FAERS Safety Report 6716236-0 (Version None)
Quarter: 2010Q2

REPORT INFORMATION
  Report Type: 
  Country: None (occurrence: None)
  Receive Date: 20100506
  Receipt Date: 20100506
  Transmission Date: 20101027
  Serious: Yes (Disabling)
  Sender: FDA-Public Use
  Company Number: None

PATIENT
  Age: 43 Year
  Sex: Female
  Weight: 76.6579 kg

DRUGS (2)
  1. ZYRTEC [Suspect]
     Indication: HYPERSENSITIVITY
     Dosage: 1 PILL
     Dates: start: 20100407, end: 20100407
  2. . [Concomitant]

REACTIONS (5)
  - INSOMNIA [None]
  - NO REACTION ON PREVIOUS EXPOSURE TO DRUG [None]
  - PAIN [None]
  - PRURITUS [None]
  - URTICARIA [None]
